FAERS Safety Report 12384134 (Version 1)
Quarter: 2016Q2

REPORT INFORMATION
  Report Type: Spontaneous
  Country: US (occurrence: US)
  Receive Date: 20160519
  Receipt Date: 20160519
  Transmission Date: 20160815
  Serious: Yes (Other)
  Sender: FDA-Public Use
  Company Number: US-BAXTER-2016BAX025813

PATIENT
  Age: 83 Year
  Sex: Female

DRUGS (9)
  1. 6MP [Suspect]
     Active Substance: MERCAPTOPURINE
     Indication: ACUTE LYMPHOCYTIC LEUKAEMIA
     Dosage: MAINTENANCE THERAPY WITH POMP
     Route: 065
     Dates: start: 201501, end: 201512
  2. MARQIBO [Suspect]
     Active Substance: VINCRISTINE SULFATE
     Indication: ACUTE LYMPHOCYTIC LEUKAEMIA RECURRENT
     Route: 065
     Dates: start: 201601, end: 201603
  3. ADRIAMYCIN [Suspect]
     Active Substance: DOXORUBICIN HYDROCHLORIDE
     Indication: ACUTE LYMPHOCYTIC LEUKAEMIA
     Dosage: 4 CYCLES OF DOSE REDUCED MODIFIED HYPERCVAD REGIMEN
     Route: 065
     Dates: start: 201403, end: 201501
  4. DEXAMETHASONE. [Suspect]
     Active Substance: DEXAMETHASONE
     Indication: ACUTE LYMPHOCYTIC LEUKAEMIA
     Dosage: 4 CYCLES OF DOSE REDUCED MODIFIED HYPERCVAD REGIMEN
     Route: 065
     Dates: start: 201403, end: 201501
  5. PREDNISONE. [Suspect]
     Active Substance: PREDNISONE
     Indication: ACUTE LYMPHOCYTIC LEUKAEMIA
     Dosage: MAINTENANCE THERAPY WITH POMP
     Route: 065
     Dates: start: 201501, end: 201512
  6. METHOTREXATE [Suspect]
     Active Substance: METHOTREXATE
     Indication: ACUTE LYMPHOCYTIC LEUKAEMIA
     Dosage: MAINTENANCE THERAPY WITH POMP
     Route: 065
     Dates: start: 201501, end: 201512
  7. CYCLOPHOSPHAMIDE FOR INJECTION, USP [Suspect]
     Active Substance: CYCLOPHOSPHAMIDE
     Indication: ACUTE LYMPHOCYTIC LEUKAEMIA
     Dosage: 4 CYCLES OF DOSE REDUCED MODIFIED HYPERCVAD REGIMEN
     Route: 065
     Dates: start: 201403, end: 201501
  8. VINCRISTINE [Suspect]
     Active Substance: VINCRISTINE
     Indication: ACUTE LYMPHOCYTIC LEUKAEMIA
     Dosage: 4 CYCLES OF DOSE REDUCED MODIFIED HYPERCVAD REGIMEN
     Route: 065
     Dates: start: 201403, end: 201501
  9. VINCRISTINE [Suspect]
     Active Substance: VINCRISTINE
     Dosage: MAINTENANCE THERAPY WITH POMP
     Route: 065
     Dates: start: 201501, end: 201512

REACTIONS (4)
  - Acute lymphocytic leukaemia refractory [Unknown]
  - Vocal cord paralysis [Unknown]
  - Acute lymphocytic leukaemia recurrent [Unknown]
  - Neuropathy peripheral [Unknown]
